FAERS Safety Report 6653920-1 (Version None)
Quarter: 2010Q1

REPORT INFORMATION
  Report Type: 
  Country: None (occurrence: None)
  Receive Date: 20100326
  Receipt Date: 20100318
  Transmission Date: 20100710
  Serious: Yes (Other)
  Sender: FDA-Public Use
  Company Number: US-PURDUE-USA-2010-0042797

PATIENT
  Sex: Male

DRUGS (2)
  1. OXYCONTIN [Suspect]
     Indication: BACK PAIN
  2. OXYCODONE [Suspect]
     Indication: BREAKTHROUGH PAIN
     Dosage: 15 MG, Q4H

REACTIONS (4)
  - CEREBROVASCULAR ACCIDENT [None]
  - HIP FRACTURE [None]
  - PAIN [None]
  - PANCREATITIS [None]
